FAERS Safety Report 9813103 (Version 1)
Quarter: 2014Q1

REPORT INFORMATION
  Report Type: Spontaneous
  Country: FR (occurrence: None)
  Receive Date: 20140109
  Receipt Date: 20140109
  Transmission Date: 20141002
  Serious: Yes (Hospitalization)
  Sender: FDA-Public Use
  Company Number: SYM-2013-14454

PATIENT
  Age: 55 Year
  Sex: Female

DRUGS (7)
  1. FLAGYL (METRONIDAZOLE) (METRONIDAZOLE) [Suspect]
     Indication: PERIODONTITIS
     Route: 048
     Dates: start: 20131201, end: 20131208
  2. AMOXICILLIN [Suspect]
     Indication: PERIODONTITIS
     Route: 048
     Dates: start: 20131201, end: 20131208
  3. THERALITE (LITHIUM CARBONATE) [Concomitant]
  4. QUETIAPINE [Concomitant]
  5. ALPRAZOLAM [Concomitant]
  6. STILNOX (ZOLPIDEM TARTRATE) [Concomitant]
  7. HYZAAR (HYZAAR) (HYDROCHLOROTHIAZIDE, LOSARTAN POTASSIUM) [Concomitant]

REACTIONS (5)
  - Abdominal pain upper [None]
  - Vomiting [None]
  - Pain [None]
  - Hepatic steatosis [None]
  - Neutrophilia [None]
